FAERS Safety Report 7986877-1 (Version None)
Quarter: 2011Q4

REPORT INFORMATION
  Report Type: 
  Country: None (occurrence: None)
  Receive Date: 20111216
  Receipt Date: 20111214
  Transmission Date: 20120403
  Serious: No
  Sender: FDA-Public Use
  Company Number: US-BAYER-2011-120535

PATIENT
  Age: 60 Year
  Sex: Male
  Weight: 68.027 kg

DRUGS (5)
  1. ULTRAVIST 150 [Suspect]
     Indication: COMPUTERISED TOMOGRAM THORAX
     Dosage: 80 ML, ONCE
     Route: 042
     Dates: start: 20111214, end: 20111214
  2. LEXAPRO [Concomitant]
  3. LORTAB [Concomitant]
  4. PRILOSEC [Concomitant]
     Dosage: UNK
  5. PRAVASTATIN [Concomitant]

REACTIONS (2)
  - URTICARIA [None]
  - PRURITUS [None]
